FAERS Safety Report 9557323 (Version 1)
Quarter: 2013Q3

REPORT INFORMATION
  Report Type: Spontaneous
  Country: US (occurrence: None)
  Receive Date: 20130726
  Receipt Date: 20130726
  Transmission Date: 20140515
  Serious: Yes (Hospitalization)
  Sender: FDA-Public Use
  Company Number: UTC-020102

PATIENT
  Age: 68 Year
  Sex: Female
  Weight: 57.7 kg

DRUGS (5)
  1. TYVASO [Suspect]
     Indication: PULMONARY HYPERTENSION
     Dosage: 96 MCG (24 MCG, 4 IN 1 D)
     Route: 055
     Dates: start: 20120531
  2. COUMADIN (WARFARIN SODIUM) [Concomitant]
  3. TRACLEER (BOSENTAN) [Concomitant]
  4. DIURETICS (DIURETICS) [Concomitant]
  5. ASPIRIN (ACETYLSALICYLIC ACID) [Concomitant]

REACTIONS (1)
  - Epistaxis [None]
